FAERS Safety Report 6304192-9 (Version None)
Quarter: 2009Q3

REPORT INFORMATION
  Report Type: 
  Country: None (occurrence: None)
  Receive Date: 20090811
  Receipt Date: 20070604
  Transmission Date: 20100115
  Serious: Yes (Hospitalization, Other)
  Sender: FDA-Public Use
  Company Number: US-ASTRAZENECA-2006UW11702

PATIENT
  Age: 13839 Day
  Sex: Male
  Weight: 61.7 kg

DRUGS (33)
  1. SEROQUEL [Suspect]
     Indication: SCHIZOPHRENIA
     Dosage: 100MG TO 300MG
     Route: 048
     Dates: start: 19981003
  2. SEROQUEL [Suspect]
     Indication: BIPOLAR DISORDER
     Dosage: 100MG TO 300MG
     Route: 048
     Dates: start: 19981003
  3. SEROQUEL [Suspect]
     Indication: DEPRESSION
     Dosage: 100MG TO 300MG
     Route: 048
     Dates: start: 19981003
  4. ABILIFY [Concomitant]
  5. GEODON [Concomitant]
  6. HALDOL [Concomitant]
  7. NAVANE [Concomitant]
  8. RISPERDAL [Concomitant]
     Dates: start: 20060101
  9. THORAZINE [Concomitant]
  10. TRILAFON [Concomitant]
  11. MELIRIL [Concomitant]
  12. ELIVIL [Concomitant]
  13. MARIJUANA [Concomitant]
  14. SPEED [Concomitant]
  15. HEROIN [Concomitant]
  16. WELLBUTRIN [Concomitant]
     Dates: start: 20021117
  17. HUMULIN R [Concomitant]
     Dosage: 30 U MORNING AND 42 BED TIME
     Dates: start: 19941121
  18. DEPAKOTE [Concomitant]
     Dates: start: 19980524
  19. BUSPAR [Concomitant]
     Dates: start: 20010724
  20. PROMETHAZINE [Concomitant]
     Dates: start: 19981013
  21. NEURONTIN [Concomitant]
     Dates: start: 20000909
  22. XANAX [Concomitant]
     Dates: start: 20040601
  23. LOMOTIL [Concomitant]
     Indication: DIARRHOEA
     Dates: start: 20040713
  24. DIFLUCAN [Concomitant]
     Dates: start: 20031027
  25. ZYPREXA [Concomitant]
     Dates: start: 19991124
  26. TRAZODONE HCL [Concomitant]
     Dates: start: 20031027
  27. ATIVAN [Concomitant]
     Dates: start: 20051028
  28. VICODIN [Concomitant]
     Indication: PAIN
     Dosage: 5/500 AS
     Route: 048
     Dates: start: 20031027
  29. RESTORIL [Concomitant]
     Dates: start: 20040621
  30. LISINOPRIL [Concomitant]
     Dosage: 10MG TO 40MG
     Dates: start: 20060726
  31. PROZAC [Concomitant]
     Dates: start: 20041027
  32. VIAGRA [Concomitant]
     Dates: start: 20050929
  33. CLONIDINE [Concomitant]
     Dosage: 0.1MG - 0.2MG
     Dates: start: 20060216

REACTIONS (12)
  - DIABETES MELLITUS INADEQUATE CONTROL [None]
  - DIABETIC AUTONOMIC NEUROPATHY [None]
  - DIABETIC FOOT [None]
  - DIABETIC NEPHROPATHY [None]
  - DIABETIC NEUROPATHY [None]
  - DIABETIC RETINOPATHY [None]
  - DIABETIC VASCULAR DISORDER [None]
  - DRUG EFFECT DECREASED [None]
  - INJURY [None]
  - OSTEOMYELITIS [None]
  - RENAL FAILURE [None]
  - TYPE 1 DIABETES MELLITUS [None]
